FAERS Safety Report 7540508-3 (Version None)
Quarter: 2011Q2

REPORT INFORMATION
  Report Type: 
  Country: None (occurrence: None)
  Receive Date: 20110610
  Receipt Date: 20110530
  Transmission Date: 20111010
  Serious: Yes (Hospitalization)
  Sender: FDA-Public Use
  Company Number: A0930115A

PATIENT
  Sex: Female

DRUGS (1)
  1. COMBIVIR [Suspect]
     Indication: ANTIVIRAL PROPHYLAXIS
     Dosage: 2TAB PER DAY
     Route: 065
     Dates: start: 20110518

REACTIONS (9)
  - GASTROINTESTINAL TRACT MUCOSAL DISCOLOURATION [None]
  - ABDOMINAL PAIN UPPER [None]
  - NAUSEA [None]
  - DIARRHOEA [None]
  - HEADACHE [None]
  - GASTRITIS [None]
  - GASTROINTESTINAL TOXICITY [None]
  - INSOMNIA [None]
  - VOMITING [None]
